FAERS Safety Report 20792234 (Version 1)
Quarter: 2022Q2

REPORT INFORMATION
  Report Type: Spontaneous
  Country: DE (occurrence: None)
  Receive Date: 20220505
  Receipt Date: 20220505
  Transmission Date: 20220720
  Serious: Yes (Other)
  Sender: FDA-Public Use
  Company Number: 2022A166949

PATIENT
  Age: 35 Year
  Sex: Female

DRUGS (7)
  1. BUDESONIDE [Suspect]
     Active Substance: BUDESONIDE
     Route: 055
  2. FORMOTEROL [Suspect]
     Active Substance: FORMOTEROL
     Route: 055
  3. PREDNISOLONE [Concomitant]
     Active Substance: PREDNISOLONE
     Dosage: 40 MG / PREDNISOLONE EACH OVER 5 DAYS
     Route: 065
  4. MONTELUKAST [Concomitant]
     Active Substance: MONTELUKAST SODIUM
  5. EBASTINE [Concomitant]
     Active Substance: EBASTINE
  6. ALBUTEROL [Concomitant]
     Active Substance: ALBUTEROL
     Dosage: 1- 2X / DIE
     Route: 065
  7. FOSTER [Concomitant]
     Active Substance: BECLOMETHASONE\FORMOTEROL
     Dosage: 200/6 MG DAILY
     Route: 065

REACTIONS (11)
  - Bronchiolitis [Unknown]
  - Bronchospasm [Unknown]
  - Eosinophilic granulomatosis with polyangiitis [Unknown]
  - Dyspnoea [Unknown]
  - Wheezing [Unknown]
  - Cough [Unknown]
  - Peak expiratory flow rate abnormal [Unknown]
  - Weight decreased [Unknown]
  - Sinusitis [Unknown]
  - Bronchial obstruction [Unknown]
  - Face and mouth X-ray abnormal [Unknown]
